FAERS Safety Report 7123392 (Version 3)
Quarter: 2014Q3

REPORT INFORMATION
  Report Type: Spontaneous
  Country: PL (occurrence: PL)
  Receive Date: 20090921
  Receipt Date: 20140829
  Transmission Date: 20150326
  Serious: Yes (Other)
  Sender: FDA-Public Use
  Company Number: PL-ROCHE-655769

PATIENT
  Sex: Male

DRUGS (1)
  1. ROACCUTANE [Suspect]
     Active Substance: ISOTRETINOIN
     Indication: PRODUCT USED FOR UNKNOWN INDICATION
     Dosage: START DATE: SECOND HALF OF 2004
     Route: 065

REACTIONS (4)
  - Osteoarthritis [Unknown]
  - Raynaud^s phenomenon [Unknown]
  - Joint stiffness [Unknown]
  - Brain injury [Unknown]
